FAERS Safety Report 11580871 (Version 3)
Quarter: 2021Q3

REPORT INFORMATION
  Report Type: Spontaneous
  Country: US (occurrence: US)
  Receive Date: 20151001
  Receipt Date: 20210922
  Transmission Date: 20211014
  Serious: No
  Sender: FDA-Public Use
  Company Number: US-GLENMARK PHARMACEUTICALS INC, USA.-2015GMK018159

PATIENT

DRUGS (1)
  1. CLOTRIMAZOLE CREAM [Suspect]
     Active Substance: CLOTRIMAZOLE
     Indication: TINEA INFECTION
     Dosage: UNK, BID
     Route: 061
     Dates: start: 20150604, end: 20150703

REACTIONS (3)
  - Product dose omission issue [Unknown]
  - Alopecia [Unknown]
  - Drug ineffective [Unknown]
